FAERS Safety Report 25987172 (Version 1)
Quarter: 2025Q4

REPORT INFORMATION
  Report Type: Spontaneous
  Country: GB (occurrence: GB)
  Receive Date: 20251103
  Receipt Date: 20251103
  Transmission Date: 20260118
  Serious: Yes (Hospitalization, Other)
  Sender: ALKEM
  Company Number: None

PATIENT
  Age: 75 Year

DRUGS (1)
  1. IBUPROFEN [Suspect]
     Active Substance: IBUPROFEN
     Indication: Product used for unknown indication
     Dosage: UNK,BID (GEL GREATER THAN 400 MILLIGRAM) TABLETS
     Route: 065
     Dates: start: 20130913, end: 20131019

REACTIONS (2)
  - Duodenal ulcer [Recovering/Resolving]
  - Duodenal ulcer perforation [Recovering/Resolving]
